FAERS Safety Report 19656626 (Version 2)
Quarter: 2021Q4

REPORT INFORMATION
  Report Type: Spontaneous
  Country: DE (occurrence: DE)
  Receive Date: 20210804
  Receipt Date: 20211019
  Transmission Date: 20220303
  Serious: Yes (Death, Life-Threatening, Hospitalization)
  Sender: FDA-Public Use
  Company Number: DE-DCGMA-21188535

PATIENT
  Age: 89 Year
  Sex: Female
  Weight: 63 kg

DRUGS (7)
  1. TIGECYCLINE [Suspect]
     Active Substance: TIGECYCLINE
     Indication: External fixation of fracture
     Dosage: DAILY DOSE: 200 MG EVERY DAYS 2 SEPARATED DOSES
     Route: 042
     Dates: start: 20210112, end: 20210126
  2. INNOHEP [Concomitant]
     Active Substance: TINZAPARIN SODIUM
     Dosage: 4500 IU
  3. TILIDINE [Concomitant]
     Active Substance: TILIDINE
     Dosage: UNK
  4. CALCIUM WITH VITAMIN D [CALCIUM PHOSPHATE;CALCIUM SODIUM LACTATE;ERGOC [Concomitant]
     Indication: Osteoporosis
     Dosage: 600 MG/1000
     Route: 048
     Dates: start: 20201217, end: 20210129
  5. DIETARY SUPPLEMENT [Concomitant]
     Active Substance: DIETARY SUPPLEMENT
     Indication: Hypoalbuminaemia
     Dosage: 3X1 BOTTLE
     Route: 048
     Dates: start: 20210107, end: 20210131
  6. ENALAPRIL\HYDROCHLOROTHIAZIDE [Concomitant]
     Active Substance: ENALAPRIL\HYDROCHLOROTHIAZIDE
     Dosage: UNK
  7. MOVICOL [Concomitant]
     Active Substance: POLYETHYLENE GLYCOL 3350\POTASSIUM CHLORIDE\SODIUM BICARBONATE\SODIUM CHLORIDE
     Dosage: UNK

REACTIONS (2)
  - Thrombocytopenia [Fatal]
  - Hepatic enzyme increased [Fatal]

NARRATIVE: CASE EVENT DATE: 20210118
